FAERS Safety Report 4703039-1 (Version None)
Quarter: 2005Q2

REPORT INFORMATION
  Report Type: 
  Country: None (occurrence: None)
  Receive Date: 20050628
  Receipt Date: 20050628
  Transmission Date: 20051028
  Serious: No
  Sender: FDA-Public Use
  Company Number: None

PATIENT
  Sex: Male
  Weight: 121.1104 kg

DRUGS (7)
  1. ZIAGEN [Suspect]
     Indication: HIV INFECTION
     Dosage: 1 TAB BID PO
     Route: 048
     Dates: start: 20050513
  2. ZIAGEN [Suspect]
     Indication: HIV INFECTION
     Dosage: 1 TAB BID PO
     Route: 048
     Dates: start: 20050610
  3. 3TC [Concomitant]
  4. NEVIRAPINE [Concomitant]
  5. METOPROLOL [Concomitant]
  6. EFFEXOR [Concomitant]
  7. MAXZIDE 37.5/25 [Concomitant]

REACTIONS (9)
  - DIARRHOEA [None]
  - ERYTHEMA [None]
  - FATIGUE [None]
  - HEART RATE INCREASED [None]
  - HOT FLUSH [None]
  - HYPERTENSION [None]
  - MALAISE [None]
  - NAUSEA [None]
  - SKIN DISORDER [None]
